APPROVED DRUG PRODUCT: WIGRAINE
Active Ingredient: CAFFEINE; ERGOTAMINE TARTRATE
Strength: 100MG;1MG
Dosage Form/Route: TABLET;ORAL
Application: A086562 | Product #001
Applicant: ORGANON USA INC
Approved: Approved Prior to Jan 1, 1982 | RLD: No | RS: No | Type: DISCN